FAERS Safety Report 12670984 (Version 1)
Quarter: 2016Q3

REPORT INFORMATION
  Report Type: Report from Study
  Country: US (occurrence: US)
  Receive Date: 20160822
  Receipt Date: 20160822
  Transmission Date: 20161109
  Serious: Yes (Other)
  Sender: FDA-Public Use
  Company Number: US-CIPLA LTD.-2016US17238

PATIENT

DRUGS (4)
  1. CARBOPLATIN. [Suspect]
     Active Substance: CARBOPLATIN
     Indication: METASTATIC MALIGNANT MELANOMA
     Dosage: AUC 6, EVERY THREE WEEKS
     Route: 065
  2. MK 2206 [Suspect]
     Active Substance: INVESTIGATIONAL PRODUCT
     Indication: METASTATIC MALIGNANT MELANOMA
     Dosage: 90 MG, EVERY 3 WEEKS FOR 5 CYCLES, PRIOR TO CHEMOTHERAPY
     Route: 048
  3. MK 2206 [Suspect]
     Active Substance: INVESTIGATIONAL PRODUCT
     Dosage: 125 MG, WEEKLY
     Route: 048
  4. PACLITAXEL. [Suspect]
     Active Substance: PACLITAXEL
     Indication: METASTATIC MALIGNANT MELANOMA
     Dosage: 200 MG/M2, EVERY THREE WEEKS
     Route: 065

REACTIONS (1)
  - Disease progression [Unknown]
